FAERS Safety Report 5242515-2 (Version None)
Quarter: 2007Q1

REPORT INFORMATION
  Report Type: 
  Country: None (occurrence: None)
  Receive Date: 20061201
  Receipt Date: 20060722
  Transmission Date: 20070707
  Serious: No
  Sender: FDA-Public Use
  Company Number: 2006PV011118

PATIENT
  Age: 45 Year
  Sex: Female
  Weight: 158.759 kg

DRUGS (6)
  1. BYETTA [Suspect]
     Indication: DIABETES MELLITUS NON-INSULIN-DEPENDENT
     Dosage: 10 MG;BID; SC
     Route: 058
     Dates: start: 20060329
  2. BYETTA [Suspect]
  3. BYETTA [Suspect]
  4. AVANDIA [Concomitant]
  5. FLIPIZIDE [Concomitant]
  6. ZESTRIL [Concomitant]

REACTIONS (8)
  - ANXIETY [None]
  - BLOOD GLUCOSE DECREASED [None]
  - INJECTION SITE BRUISING [None]
  - INJECTION SITE HAEMORRHAGE [None]
  - NAUSEA [None]
  - TREMOR [None]
  - VISION BLURRED [None]
  - WEIGHT DECREASED [None]
